FAERS Safety Report 13123485 (Version 3)
Quarter: 2017Q1

REPORT INFORMATION
  Report Type: Spontaneous
  Country: KR (occurrence: KR)
  Receive Date: 20170117
  Receipt Date: 20170201
  Transmission Date: 20170428
  Serious: Yes (Hospitalization)
  Sender: FDA-Public Use
  Company Number: KR-ABBVIE-17P-090-1841301-00

PATIENT
  Age: 13 Year
  Sex: Female

DRUGS (5)
  1. ZONISAMIDE. [Concomitant]
     Active Substance: ZONISAMIDE
     Indication: PRODUCT USED FOR UNKNOWN INDICATION
  2. LACOSAMIDE. [Interacting]
     Active Substance: LACOSAMIDE
     Route: 065
  3. LACOSAMIDE. [Interacting]
     Active Substance: LACOSAMIDE
     Indication: EPILEPSY
     Route: 065
  4. VALPROIC ACID. [Suspect]
     Active Substance: VALPROIC ACID
     Indication: EPILEPSY
     Route: 065
  5. LEVETIRACETAM. [Concomitant]
     Active Substance: LEVETIRACETAM
     Indication: PRODUCT USED FOR UNKNOWN INDICATION

REACTIONS (9)
  - Pyrexia [Unknown]
  - Hypophagia [Unknown]
  - Drug interaction [Unknown]
  - Toxicity to various agents [Unknown]
  - Hyperammonaemia [Recovered/Resolved]
  - Somnolence [Recovered/Resolved]
  - Therapeutic response decreased [Unknown]
  - Cough [Unknown]
  - Influenza [Unknown]
